FAERS Safety Report 6112159-9 (Version None)
Quarter: 2009Q1

REPORT INFORMATION
  Report Type: 
  Country: None (occurrence: None)
  Receive Date: 20090309
  Receipt Date: 20090309
  Transmission Date: 20090719
  Serious: Yes (Hospitalization)
  Sender: FDA-Public Use
  Company Number: 2004-00194FE

PATIENT
  Age: 39 Year

DRUGS (2)
  1. BRAVELLE [Suspect]
     Indication: INFERTILITY
     Dosage: 225 IU DAILY, SC
     Route: 059
     Dates: start: 20010525, end: 20010601
  2. BRAVELLE [Suspect]
     Indication: INFERTILITY
     Dosage: 150 IU DAILY, SC
     Route: 058
     Dates: start: 20010602, end: 20010602

REACTIONS (11)
  - CHEST PAIN [None]
  - DECREASED APPETITE [None]
  - DEHYDRATION [None]
  - DIZZINESS [None]
  - DYSPNOEA [None]
  - HAEMOCONCENTRATION [None]
  - NAUSEA [None]
  - OVARIAN HYPERSTIMULATION SYNDROME [None]
  - TWIN PREGNANCY [None]
  - VISUAL IMPAIRMENT [None]
  - WHITE BLOOD CELL COUNT INCREASED [None]
